FAERS Safety Report 4724411-X (Version None)
Quarter: 2005Q3

REPORT INFORMATION
  Report Type: 
  Country: None (occurrence: None)
  Receive Date: 20050722
  Receipt Date: 20050722
  Transmission Date: 20060218
  Serious: Yes (Hospitalization, Other)
  Sender: FDA-Public Use
  Company Number: None

PATIENT
  Age: 49 Year
  Sex: Female
  Weight: 85 kg

DRUGS (2)
  1. ADRIAMYCIN PFS [Suspect]
     Indication: BREAST CANCER
     Dosage: SEE IMAGE
     Dates: start: 20050711
  2. CYTOXAN [Suspect]
     Dosage: SEE IMAGE
     Route: 042

REACTIONS (2)
  - NAUSEA [None]
  - VOMITING [None]
